FAERS Safety Report 8157095 (Version 4)
Quarter: 2012Q4

REPORT INFORMATION
  Report Type: 
  Country: US (occurrence: US)
  Receive Date: 20110926
  Receipt Date: 20121031
  Transmission Date: 20130627
  Serious: Yes (Other)
  Sender: FDA-Public Use
  Company Number: US-ASTRAZENECA-2010SE61301

PATIENT
  Age: 58 Year
  Sex: Male

DRUGS (2)
  1. NEXIUM [Suspect]
     Route: 048
  2. CRESTOR [Suspect]
     Indication: PERIPHERAL VASCULAR DISORDER
     Route: 048

REACTIONS (8)
  - Cerebrovascular accident [Unknown]
  - Gastrooesophageal reflux disease [Unknown]
  - Dyspepsia [Unknown]
  - Limb discomfort [Unknown]
  - Mental impairment [Unknown]
  - Arteriosclerosis [Not Recovered/Not Resolved]
  - Abdominal pain upper [Unknown]
  - Drug dose omission [Unknown]
